FAERS Safety Report 9742626 (Version 1)
Quarter: 2013Q4

REPORT INFORMATION
  Report Type: Spontaneous
  Country: US (occurrence: US)
  Receive Date: 20131210
  Receipt Date: 20131210
  Transmission Date: 20140711
  Serious: No
  Sender: FDA-Public Use
  Company Number: US-GILEAD-2009-0024764

PATIENT
  Sex: Female
  Weight: 84.82 kg

DRUGS (15)
  1. LETAIRIS [Suspect]
     Indication: PULMONARY ARTERIAL HYPERTENSION
     Route: 048
     Dates: start: 20090916
  2. GABAPENTIN [Concomitant]
  3. HCTZ [Concomitant]
  4. TRIAMTERENE/HCTZ [Concomitant]
  5. ASPIRIN [Concomitant]
  6. VITAMIN D-3 [Concomitant]
  7. OXYGEN [Concomitant]
  8. PREMARIN [Concomitant]
  9. NASONEX [Concomitant]
  10. LISINOPRIL [Concomitant]
  11. PRILOSEC [Concomitant]
  12. HYDROCODONE-APAP [Concomitant]
  13. PROAIR HFA [Concomitant]
  14. POTASSIUM [Concomitant]
  15. PLAQUENIL [Concomitant]

REACTIONS (2)
  - Oedema [Unknown]
  - Weight increased [Unknown]
